FAERS Safety Report 5638796-3 (Version None)
Quarter: 2008Q1

REPORT INFORMATION
  Report Type: 
  Country: None (occurrence: None)
  Receive Date: 20080226
  Receipt Date: 20080220
  Transmission Date: 20080703
  Serious: Yes (Hospitalization)
  Sender: FDA-Public Use
  Company Number: ES-BRISTOL-MYERS SQUIBB COMPANY-14083604

PATIENT
  Age: 48 Year
  Sex: Female

DRUGS (1)
  1. ORENCIA [Suspect]
     Indication: RHEUMATOID ARTHRITIS
     Dosage: DOSE:3 VIALS
     Route: 042
     Dates: start: 20080207, end: 20080207

REACTIONS (3)
  - PNEUMONIA [None]
  - POLYARTHRITIS [None]
  - PYREXIA [None]
